APPROVED DRUG PRODUCT: PEDIAMYCIN
Active Ingredient: ERYTHROMYCIN ETHYLSUCCINATE
Strength: EQ 200MG BASE
Dosage Form/Route: TABLET, CHEWABLE;ORAL
Application: A062306 | Product #001
Applicant: ROSS LABORATORIES DIV ABBOTT LABORATORIES INC
Approved: Approved Prior to Jan 1, 1982 | RLD: No | RS: No | Type: DISCN